FAERS Safety Report 23325148 (Version 1)
Quarter: 2023Q4

REPORT INFORMATION
  Report Type: Report from Study
  Country: US (occurrence: US)
  Receive Date: 20231221
  Receipt Date: 20231221
  Transmission Date: 20240110
  Serious: Yes (Other)
  Sender: FDA-Public Use
  Company Number: US-DECIPHERA PHARMACEUTICALS LLC-2023US001113

PATIENT
  Age: 54 Year
  Sex: Female

DRUGS (1)
  1. QINLOCK [Suspect]
     Active Substance: RIPRETINIB
     Indication: Malignant connective tissue neoplasm
     Dosage: 100 MILLIGRAM, BID
     Route: 048
     Dates: start: 20220801

REACTIONS (3)
  - Hepatic cancer [Unknown]
  - Extra dose administered [Unknown]
  - Product use in unapproved indication [Unknown]
